FAERS Safety Report 25955271 (Version 1)
Quarter: 2025Q4

REPORT INFORMATION
  Report Type: Report from Study
  Country: US (occurrence: US)
  Receive Date: 20251024
  Receipt Date: 20251024
  Transmission Date: 20260117
  Serious: Yes (Hospitalization, Other)
  Sender: IPSEN BIOPHARMACEUTICALS, INC.
  Company Number: US-IPSEN Group, Research and Development-2023-10313

PATIENT
  Age: 57 Year
  Sex: Female
  Weight: 81.2 kg

DRUGS (13)
  1. ONIVYDE [Suspect]
     Active Substance: IRINOTECAN HYDROCHLORIDE
     Indication: Pancreatic carcinoma
     Dates: start: 20230313, end: 20230419
  2. LEUCOVORIN [Suspect]
     Active Substance: LEUCOVORIN\LEUCOVORIN CALCIUM
     Indication: Pancreatic carcinoma
     Dates: start: 20230313, end: 20230419
  3. OXALIPLATIN [Suspect]
     Active Substance: OXALIPLATIN
     Indication: Pancreatic carcinoma
     Dates: start: 20230313, end: 20230419
  4. FLUOROURACIL [Suspect]
     Active Substance: FLUOROURACIL
     Indication: Pancreatic carcinoma
     Dates: start: 20230419, end: 20230419
  5. CEFTRIAXONE [Concomitant]
     Active Substance: CEFTRIAXONE
  6. ONDANSETRON [Concomitant]
     Active Substance: ONDANSETRON
  7. OXYCODONE [Concomitant]
     Active Substance: OXYCODONE
  8. APIXABAN [Concomitant]
     Active Substance: APIXABAN
     Indication: Antibiotic prophylaxis
     Dosage: 2.5 MG/TABLETS BID
     Dates: start: 20230511
  9. LOPERAMIDE [Concomitant]
     Active Substance: LOPERAMIDE
     Dosage: 2MG/CAPSULES/QID FOR 30DAYS
     Dates: start: 20230511
  10. PACLITAXEL [Concomitant]
     Active Substance: PACLITAXEL
     Dosage: 185 MG/IV, EVERY 14 DAYS
     Dates: start: 20230511
  11. POTASSIUM CHLORIDE [Concomitant]
     Active Substance: POTASSIUM CHLORIDE
     Dosage: 20 MEQ/TABLET BID
     Dates: start: 20230511
  12. FLAGYL [Concomitant]
     Active Substance: METRONIDAZOLE\METRONIDAZOLE HYDROCHLORIDE
     Dosage: BID
  13. CEFPODOXIME [Concomitant]
     Active Substance: CEFPODOXIME
     Dosage: BID

REACTIONS (8)
  - Enterocolitis [Recovered/Resolved]
  - Abdominal pain [Unknown]
  - Diarrhoea [Unknown]
  - Nausea [Unknown]
  - Vomiting [Unknown]
  - Haematochezia [Unknown]
  - Oedema [Unknown]
  - Erythema [Unknown]

NARRATIVE: CASE EVENT DATE: 20230430
